FAERS Safety Report 19818737 (Version 1)
Quarter: 2021Q3

REPORT INFORMATION
  Report Type: Spontaneous
  Country: CA (occurrence: CA)
  Receive Date: 20210912
  Receipt Date: 20210912
  Transmission Date: 20211014
  Serious: Yes (Hospitalization)
  Sender: FDA-Public Use
  Company Number: CA-TEVA-2021-CA-1951083

PATIENT
  Age: 73 Year
  Sex: Female
  Weight: 94 kg

DRUGS (10)
  1. MAGNESIUM OXIDE. [Concomitant]
     Active Substance: MAGNESIUM OXIDE
  2. SERTRALINE [Concomitant]
     Active Substance: SERTRALINE HYDROCHLORIDE
  3. CARBOPLATIN. [Suspect]
     Active Substance: CARBOPLATIN
     Indication: SEROUS CYSTADENOCARCINOMA OVARY
     Route: 042
  4. PACLITAXEL   INJECTION [Suspect]
     Active Substance: PACLITAXEL
     Indication: SEROUS CYSTADENOCARCINOMA OVARY
     Route: 042
  5. PACLITAXEL   INJECTION [Suspect]
     Active Substance: PACLITAXEL
     Indication: METASTASES TO LYMPH NODES
  6. BUPROPION XL [Concomitant]
     Active Substance: BUPROPION
  7. LOPERAMIDE [Concomitant]
     Active Substance: LOPERAMIDE
  8. CARBOPLATIN. [Suspect]
     Active Substance: CARBOPLATIN
     Indication: METASTASES TO LYMPH NODES
  9. NYSTATIN. [Concomitant]
     Active Substance: NYSTATIN
  10. HYDROCHLOROTHIAZIDE/ OLMESARTAN MEDOXOMIL [Concomitant]

REACTIONS (3)
  - Febrile neutropenia [Recovered/Resolved]
  - Escherichia infection [Recovered/Resolved]
  - Urosepsis [Recovered/Resolved]
